FAERS Safety Report 7269191-1 (Version None)
Quarter: 2011Q1

REPORT INFORMATION
  Report Type: 
  Country: None (occurrence: None)
  Receive Date: 20110202
  Receipt Date: 20110127
  Transmission Date: 20110831
  Serious: Yes (Hospitalization, Disabling)
  Sender: FDA-Public Use
  Company Number: CA-SHIRE-SPV1-2010-01653

PATIENT
  Sex: Female

DRUGS (3)
  1. VYVANSE [Suspect]
     Dosage: 60 MG, 1X/DAY:QD
     Dates: start: 20101103
  2. VYVANSE [Suspect]
     Indication: ATTENTION DEFICIT/HYPERACTIVITY DISORDER
     Dosage: 50 MG, UNKNOWN
     Route: 065
     Dates: start: 20100811
  3. VYVANSE [Suspect]
     Dosage: 100 MG, 1X/DAY:QD
     Dates: end: 20101103

REACTIONS (2)
  - PARANOIA [None]
  - OVERDOSE [None]
